FAERS Safety Report 8240695-8 (Version None)
Quarter: 2012Q1

REPORT INFORMATION
  Report Type: 
  Country: None (occurrence: None)
  Receive Date: 20120328
  Receipt Date: 20120316
  Transmission Date: 20120608
  Serious: No
  Sender: FDA-Public Use
  Company Number: US-B.I. PHARMACEUTICALS,INC./RIDGEFIELD-2012-BP-05125BP

PATIENT
  Sex: Female

DRUGS (15)
  1. DOXYCYCLINE [Concomitant]
     Indication: LOWER RESPIRATORY TRACT INFECTION
     Route: 048
  2. CALCIUM CARBONATE [Concomitant]
     Indication: SUPPLEMENTATION THERAPY
     Route: 048
  3. SPIRIVA [Suspect]
     Indication: COUGH
  4. COMBIVENT [Suspect]
     Indication: LOWER RESPIRATORY TRACT INFECTION
     Dosage: 4 PUF
     Route: 055
     Dates: start: 20120222
  5. COMBIVENT [Suspect]
     Indication: COUGH
  6. MUCINEX [Concomitant]
     Indication: COUGH
  7. DOXYCYCLINE [Concomitant]
     Indication: COUGH
  8. ADVAIR DISKUS 100/50 [Concomitant]
     Indication: CHRONIC OBSTRUCTIVE PULMONARY DISEASE
     Route: 055
  9. SPIRIVA [Suspect]
     Indication: LOWER RESPIRATORY TRACT INFECTION
     Dosage: 18 MCG
     Route: 055
     Dates: start: 20120222
  10. LEXAPRO [Concomitant]
     Indication: DEPRESSION
     Route: 048
  11. MUCINEX [Concomitant]
     Indication: LOWER RESPIRATORY TRACT INFECTION
     Route: 048
  12. ALBUTEROL [Concomitant]
     Indication: COUGH
  13. VITAMIN E [Concomitant]
     Indication: SUPPLEMENTATION THERAPY
     Route: 048
  14. ALBUTEROL [Concomitant]
     Indication: LOWER RESPIRATORY TRACT INFECTION
     Route: 055
  15. CRESTOR [Concomitant]
     Indication: BLOOD CHOLESTEROL INCREASED
     Route: 048

REACTIONS (4)
  - ABNORMAL SENSATION IN EYE [None]
  - DRY MOUTH [None]
  - DIZZINESS [None]
  - ASTHENOPIA [None]
